FAERS Safety Report 8392302-1 (Version None)
Quarter: 2012Q2

REPORT INFORMATION
  Report Type: 
  Country: None (occurrence: None)
  Receive Date: 20120529
  Receipt Date: 20120516
  Transmission Date: 20120825
  Serious: Yes (Other)
  Sender: FDA-Public Use
  Company Number: ES-JNJFOC-20120311088

PATIENT
  Sex: Male

DRUGS (9)
  1. FLUTICASONE PROPIONATE/SALMETEROL [Concomitant]
     Indication: HYPERSENSITIVITY
     Route: 065
  2. TRILEPTAL [Concomitant]
     Indication: PSYCHOMOTOR HYPERACTIVITY
     Route: 065
  3. ACETYLCYSTEINE [Concomitant]
     Indication: HYPERSENSITIVITY
     Route: 065
  4. DEPAKIN [Concomitant]
     Indication: PSYCHOMOTOR HYPERACTIVITY
     Route: 065
  5. AFLUON [Concomitant]
     Indication: HYPERSENSITIVITY
     Route: 065
  6. CONCERTA [Suspect]
     Indication: PSYCHOMOTOR HYPERACTIVITY
     Dosage: HAD ONE TABLET IN THE MORNING
     Route: 048
     Dates: start: 20120317, end: 20120317
  7. DESLORATADINE [Concomitant]
     Indication: HYPERSENSITIVITY
     Route: 065
  8. NASONEX [Concomitant]
     Indication: HYPERSENSITIVITY
     Route: 065
  9. TRANXILIUM [Concomitant]
     Indication: PSYCHOMOTOR HYPERACTIVITY
     Route: 030

REACTIONS (6)
  - DYSPHAGIA [None]
  - RESTLESSNESS [None]
  - MUSCLE CONTRACTURE [None]
  - NERVOUS SYSTEM DISORDER [None]
  - AGITATION [None]
  - NERVOUSNESS [None]
